FAERS Safety Report 12774288 (Version 6)
Quarter: 2019Q3

REPORT INFORMATION
  Report Type: Spontaneous
  Country: US (occurrence: US)
  Receive Date: 20160923
  Receipt Date: 20190823
  Transmission Date: 20191004
  Serious: No
  Sender: FDA-Public Use
  Company Number: US-PFIZER INC-2016445015

PATIENT
  Age: 51 Year
  Sex: Female
  Weight: 102 kg

DRUGS (14)
  1. METHOCARBAMOL. [Concomitant]
     Active Substance: METHOCARBAMOL
     Indication: MUSCLE RIGIDITY
     Dosage: 750 MG, AS NEEDED(1 BY MOUTH IN THE AFTERNOON, AND AS NEEDED ONCE MORE AT BEDTIME)
     Route: 048
     Dates: start: 2007
  2. COLACE [Concomitant]
     Active Substance: DOCUSATE SODIUM
     Indication: IRRITABLE BOWEL SYNDROME
     Dosage: UNK, AS NEEDED
  3. PERCOCET [Concomitant]
     Active Substance: ACETAMINOPHEN\OXYCODONE HYDROCHLORIDE
     Indication: BACK PAIN
     Dosage: UNK, AS NEEDED (OXYCODONE HYDROCHLORIDE: 10/PARACETAMOL: 325)MG(THREE TIMES A DAY)
     Route: 048
     Dates: start: 200610
  4. LORAZEPAM. [Concomitant]
     Active Substance: LORAZEPAM
     Indication: ANXIETY
     Dosage: 0.5 MG, 2X/DAY(1MG TABLET-0.5 TABLET TAKEN BY MOUTH UP TO TWO TIMES A DAY)
     Route: 048
  5. GAS-X [Concomitant]
     Active Substance: DIMETHICONE
     Indication: IRRITABLE BOWEL SYNDROME
     Dosage: UNK, AS NEEDED
  6. LYRICA [Suspect]
     Active Substance: PREGABALIN
     Indication: NEURALGIA
     Dosage: UNK
     Dates: start: 20180803
  7. LYRICA [Suspect]
     Active Substance: PREGABALIN
     Dosage: 50 MG, 2X/DAY (DECREASED IT TO 1 CAPSULE TWICE DAILY)
  8. PROMETHAZINE [Concomitant]
     Active Substance: PROMETHAZINE HYDROCHLORIDE
     Indication: NAUSEA
     Dosage: 25 MG, AS NEEDED (1 TABLET THREE TIMES A DAY AS NEEDED WITH PERCOCET)
     Dates: start: 2006
  9. NABUMETONE. [Concomitant]
     Active Substance: NABUMETONE
     Indication: INFLAMMATION
     Dosage: 500 MG, 3X/DAY
     Route: 048
     Dates: start: 2008
  10. OMEPRAZOLE. [Concomitant]
     Active Substance: OMEPRAZOLE
     Indication: ULCER
     Dosage: 20 MG, DAILY
     Route: 048
     Dates: start: 2008
  11. LYRICA [Suspect]
     Active Substance: PREGABALIN
     Indication: CONFUSIONAL STATE
     Dosage: 100 MG, 2X/DAY (2 CAPSULES TWICE DAILY FOR A FEW DAYS)
  12. METHOCARBAMOL. [Concomitant]
     Active Substance: METHOCARBAMOL
     Indication: MUSCLE SPASMS
  13. CITALOPRAM [Concomitant]
     Active Substance: CITALOPRAM HYDROBROMIDE
     Indication: DEPRESSION
     Dosage: 60 MG, 1X/DAY(40MG TABLETS-1.5 TABLETS TAKEN BY MOUTH DAILY AT BEDTIME)
     Route: 048
  14. LYRICA [Suspect]
     Active Substance: PREGABALIN
     Indication: FIBROMYALGIA
     Dosage: 100 MG, 2X/DAY(1 CAPSULE TWICE A DAY)
     Dates: start: 2005

REACTIONS (4)
  - Drug ineffective [Unknown]
  - Pain [Not Recovered/Not Resolved]
  - Fatigue [Unknown]
  - Condition aggravated [Unknown]

NARRATIVE: CASE EVENT DATE: 2005
